FAERS Safety Report 25801264 (Version 2)
Quarter: 2025Q4

REPORT INFORMATION
  Report Type: Report from Study
  Country: US (occurrence: US)
  Receive Date: 20250915
  Receipt Date: 20251106
  Transmission Date: 20260117
  Serious: Yes (Other)
  Sender: ALEXION PHARMACEUTICALS
  Company Number: 202506USA027896US

PATIENT
  Age: 38 Year
  Sex: Female
  Weight: 82.54 kg

DRUGS (1)
  1. ANIFROLUMAB [Suspect]
     Active Substance: ANIFROLUMAB
     Indication: Systemic lupus erythematosus
     Dosage: 300 MILLIGRAM, Q4W
     Dates: start: 20250520

REACTIONS (9)
  - Sinus polyp [Unknown]
  - Upper-airway cough syndrome [Unknown]
  - Vertigo [Unknown]
  - Headache [Unknown]
  - Protein urine present [Unknown]
  - Dysuria [Unknown]
  - Systemic lupus erythematosus [Not Recovered/Not Resolved]
  - Pain [Unknown]
  - Creatinine urine increased [Unknown]

NARRATIVE: CASE EVENT DATE: 20221220
